FAERS Safety Report 10254670 (Version 1)
Quarter: 2014Q2

REPORT INFORMATION
  Report Type: Spontaneous
  Country: GB (occurrence: GB)
  Receive Date: 20140624
  Receipt Date: 20140624
  Transmission Date: 20141212
  Serious: Yes (Life-Threatening, Other)
  Sender: FDA-Public Use
  Company Number: GB-RANBAXY-2014RR-82569

PATIENT
  Age: 42 Year
  Sex: Female
  Weight: 95 kg

DRUGS (2)
  1. CO-AMOXICLAV [Suspect]
     Indication: ANTIBIOTIC PROPHYLAXIS
     Dosage: 1.2 G, UNK
     Route: 042
     Dates: start: 20140526, end: 20140526
  2. PENICILLIN [Concomitant]
     Indication: PRODUCT USED FOR UNKNOWN INDICATION
     Dosage: UNK
     Route: 048

REACTIONS (1)
  - Anaphylactic reaction [Recovered/Resolved]
